FAERS Safety Report 24398112 (Version 1)
Quarter: 2024Q4

REPORT INFORMATION
  Report Type: Spontaneous
  Country: RO (occurrence: RO)
  Receive Date: 20241004
  Receipt Date: 20241004
  Transmission Date: 20250115
  Serious: Yes (Death, Other)
  Sender: UCB
  Company Number: RO-UCBSA-2024049676

PATIENT
  Age: 59 Year
  Sex: Male
  Weight: 130 kg

DRUGS (5)
  1. BIMZELX [Suspect]
     Active Substance: BIMEKIZUMAB-BKZX
     Indication: Product used for unknown indication
     Dosage: UNK
  2. DIOSMIN\HESPERIDIN [Concomitant]
     Active Substance: DIOSMIN\HESPERIDIN
     Indication: Product used for unknown indication
     Dosage: 2 PER DAY
  3. SULODEXIDE [Concomitant]
     Active Substance: SULODEXIDE
     Indication: Product used for unknown indication
     Dosage: 2 PER DAY
  4. ALLOPURINOL [Concomitant]
     Active Substance: ALLOPURINOL
     Indication: Product used for unknown indication
     Dosage: 3000 GRAM, ONCE DAILY (QD)
  5. CARBISET [Concomitant]
     Indication: Product used for unknown indication
     Dosage: 8 MILLIGRAM

REACTIONS (5)
  - Multiple organ dysfunction syndrome [Fatal]
  - Cardio-respiratory arrest [Fatal]
  - Sepsis [Unknown]
  - Road traffic accident [Unknown]
  - Joint injury [Unknown]

NARRATIVE: CASE EVENT DATE: 20240810
